FAERS Safety Report 19454465 (Version 4)
Quarter: 2021Q3

REPORT INFORMATION
  Report Type: Report from Study
  Country: US (occurrence: US)
  Receive Date: 20210623
  Receipt Date: 20210730
  Transmission Date: 20211014
  Serious: Yes (Hospitalization)
  Sender: FDA-Public Use
  Company Number: NVSC2021US136171

PATIENT
  Age: 80 Year
  Sex: Female

DRUGS (2)
  1. TAFINLAR [Suspect]
     Active Substance: DABRAFENIB MESYLATE
     Indication: LUNG NEOPLASM MALIGNANT
     Dosage: 150 MG, BID
     Route: 048
     Dates: start: 202106
  2. MEKINIST [Suspect]
     Active Substance: TRAMETINIB DIMETHYL SULFOXIDE
     Indication: LUNG NEOPLASM MALIGNANT
     Dosage: 2 MG, QD
     Route: 048
     Dates: start: 202106

REACTIONS (8)
  - Asthenia [Unknown]
  - Pneumothorax [Unknown]
  - Product availability issue [Unknown]
  - Balance disorder [Unknown]
  - Pleural effusion [Unknown]
  - Headache [Unknown]
  - Post procedural persistent drain fluid [Unknown]
  - Pain [Unknown]

NARRATIVE: CASE EVENT DATE: 20210629
